FAERS Safety Report 20672708 (Version 1)
Quarter: 2022Q2

REPORT INFORMATION
  Report Type: Spontaneous
  Country: SE (occurrence: SE)
  Receive Date: 20220405
  Receipt Date: 20220405
  Transmission Date: 20220720
  Serious: No
  Sender: FDA-Public Use
  Company Number: SE-ALKEM LABORATORIES LIMITED-SE-ALKEM-2022-00543

PATIENT
  Sex: Female

DRUGS (1)
  1. QUETIAPINE FUMARATE [Suspect]
     Active Substance: QUETIAPINE FUMARATE
     Indication: Antipsychotic therapy
     Dosage: UNK
     Route: 065

REACTIONS (1)
  - Exposure during pregnancy [Unknown]
